FAERS Safety Report 19232648 (Version 1)
Quarter: 2021Q2

REPORT INFORMATION
  Report Type: Spontaneous
  Country: PT (occurrence: PT)
  Receive Date: 20210507
  Receipt Date: 20210507
  Transmission Date: 20210717
  Serious: Yes (Other)
  Sender: FDA-Public Use
  Company Number: PT-ACCORD-224497

PATIENT
  Age: 72 Year
  Sex: Female

DRUGS (3)
  1. TAVIST ALLERGY [Concomitant]
     Active Substance: CLEMASTINE FUMARATE
     Indication: PREMEDICATION
     Route: 042
     Dates: start: 20210208
  2. PACLITAXEL ACCORD [Suspect]
     Active Substance: PACLITAXEL
     Indication: BREAST CANCER RECURRENT
     Dosage: 140 MG IN 250 ML OF PHYSIOLOGICAL SALINE FOR INFUSION OVER 1 HOUR
     Route: 042
     Dates: start: 20210208
  3. DEXAMETHASONE. [Concomitant]
     Active Substance: DEXAMETHASONE
     Indication: PREMEDICATION
     Dosage: C1 ? 10MG; C2 ? 10MG; C3 ? 4 MG AND REMAINING CYCLES ? 2 MG
     Route: 042
     Dates: start: 20210208, end: 20210208

REACTIONS (3)
  - Flushing [Recovered/Resolved]
  - Anal sphincter atony [Recovered/Resolved]
  - Diarrhoea [Recovered/Resolved]

NARRATIVE: CASE EVENT DATE: 20210208
